FAERS Safety Report 16418671 (Version 2)
Quarter: 2019Q2

REPORT INFORMATION
  Report Type: Spontaneous
  Country: US (occurrence: US)
  Receive Date: 20190612
  Receipt Date: 20190620
  Transmission Date: 20190711
  Serious: Yes (Other)
  Sender: FDA-Public Use
  Company Number: US-PHARMING-PHAUS2019000395

PATIENT

DRUGS (1)
  1. RUCONEST [Suspect]
     Active Substance: HUMAN C1-ESTERASE INHIBITOR
     Indication: HEREDITARY ANGIOEDEMA
     Dosage: UNK
     Route: 065

REACTIONS (8)
  - Hereditary angioedema [Unknown]
  - Victim of sexual abuse [Unknown]
  - Pain [Unknown]
  - Malaise [Unknown]
  - Nightmare [Unknown]
  - Head injury [Unknown]
  - Joint dislocation [Unknown]
  - Hand fracture [Unknown]
